FAERS Safety Report 11831011 (Version 1)
Quarter: 2015Q4

REPORT INFORMATION
  Report Type: Report from Study
  Country: JP (occurrence: JP)
  Receive Date: 20151214
  Receipt Date: 20151214
  Transmission Date: 20160305
  Serious: Yes (Other)
  Sender: FDA-Public Use
  Company Number: PHHY2011JP125975

PATIENT
  Age: 43 Year
  Sex: Male
  Weight: 76 kg

DRUGS (15)
  1. NELARABINE [Suspect]
     Active Substance: NELARABINE
     Indication: T-CELL TYPE ACUTE LEUKAEMIA
     Dosage: 1500 MG/M2, QD
     Route: 041
     Dates: start: 20100830, end: 20100903
  2. NELARABINE [Suspect]
     Active Substance: NELARABINE
     Dosage: 1500 MG/M2, QD
     Route: 041
     Dates: start: 20101129, end: 20101203
  3. NELARABINE [Suspect]
     Active Substance: NELARABINE
     Dosage: 1500 MG/M2, QD
     Route: 041
     Dates: start: 20110103, end: 20110107
  4. METHOTREXATE [Concomitant]
     Active Substance: METHOTREXATE
     Indication: T-CELL TYPE ACUTE LEUKAEMIA
     Dosage: 15 MG, QD
     Route: 042
     Dates: start: 20100914
  5. NELARABINE [Suspect]
     Active Substance: NELARABINE
     Dosage: 1500 MG/M2, QD
     Route: 041
     Dates: start: 20100919, end: 20100923
  6. BAKTAR [Concomitant]
     Active Substance: SULFAMETHOXAZOLE\TRIMETHOPRIM
     Indication: PRODUCT USED FOR UNKNOWN INDICATION
     Dosage: UNK
     Route: 048
     Dates: start: 20100830, end: 20110318
  7. DIFLUCAN [Concomitant]
     Active Substance: FLUCONAZOLE
     Indication: PRODUCT USED FOR UNKNOWN INDICATION
     Dosage: UNK
     Route: 048
     Dates: start: 20100830, end: 20110318
  8. NELARABINE [Suspect]
     Active Substance: NELARABINE
     Dosage: 1500 MG/M2, QD
     Route: 041
     Dates: start: 20110317, end: 20110318
  9. GRAN [Concomitant]
     Active Substance: FILGRASTIM
     Indication: PRODUCT USED FOR UNKNOWN INDICATION
     Dosage: UNK
     Route: 065
     Dates: start: 20110322
  10. OMEPRAL//OMEPRAZOLE [Concomitant]
     Indication: PRODUCT USED FOR UNKNOWN INDICATION
     Dosage: UNK
     Route: 048
     Dates: start: 20100830, end: 20110319
  11. OLMETEC [Concomitant]
     Active Substance: OLMESARTAN MEDOXOMIL
     Indication: PRODUCT USED FOR UNKNOWN INDICATION
     Dosage: UNK
     Route: 048
     Dates: start: 20100830, end: 20110318
  12. ZYLORIC [Concomitant]
     Active Substance: ALLOPURINOL
     Indication: PRODUCT USED FOR UNKNOWN INDICATION
     Dosage: UNK
     Route: 048
     Dates: start: 20100830, end: 20110318
  13. NELARABINE [Suspect]
     Active Substance: NELARABINE
     Dosage: 1500 MG/M2, QD
     Route: 041
     Dates: start: 20101101, end: 20101105
  14. CYTARABINE. [Concomitant]
     Active Substance: CYTARABINE
     Indication: T-CELL TYPE ACUTE LEUKAEMIA
     Dosage: 40 MG, QD
     Route: 042
     Dates: start: 20100914
  15. NELARABINE [Suspect]
     Active Substance: NELARABINE
     Dosage: 1500 MG/M2, QD
     Route: 041
     Dates: start: 20100929, end: 20101003

REACTIONS (4)
  - Malignant neoplasm progression [Unknown]
  - Haematotoxicity [Recovering/Resolving]
  - Hepatic function abnormal [Recovering/Resolving]
  - T-cell type acute leukaemia [Unknown]

NARRATIVE: CASE EVENT DATE: 20100906
